FAERS Safety Report 4589786-3 (Version None)
Quarter: 2005Q1

REPORT INFORMATION
  Report Type: 
  Country: None (occurrence: None)
  Receive Date: 20050223
  Receipt Date: 20050217
  Transmission Date: 20050727
  Serious: Yes (Other)
  Sender: FDA-Public Use
  Company Number: US-GLAXOSMITHKLINE-A0546075A

PATIENT
  Age: 21 Year
  Sex: Male

DRUGS (2)
  1. WELLBUTRIN [Suspect]
     Indication: ILL-DEFINED DISORDER
     Route: 048
  2. NO CONCURRENT MEDICATION [Concomitant]

REACTIONS (5)
  - BLOOD CAFFEINE INCREASED [None]
  - CONVULSION [None]
  - FATIGUE [None]
  - SLEEP DISORDER [None]
  - WEIGHT DECREASED [None]
